FAERS Safety Report 4555685-6 (Version None)
Quarter: 2005Q1

REPORT INFORMATION
  Report Type: 
  Country: None (occurrence: None)
  Receive Date: 20050119
  Receipt Date: 20041222
  Transmission Date: 20050727
  Serious: Yes (Other)
  Sender: FDA-Public Use
  Company Number: PHBS2004JP17213

PATIENT
  Age: 38 Year
  Sex: Female

DRUGS (4)
  1. SERENACE [Suspect]
  2. AKINETON [Suspect]
  3. HYDRALAZINE HCL [Suspect]
     Indication: PRE-ECLAMPSIA
     Dates: start: 20030801
  4. MAGNESIUM [Concomitant]

REACTIONS (8)
  - BLOOD PRESSURE INCREASED [None]
  - CAESAREAN SECTION [None]
  - DRUG EXPOSURE DURING PREGNANCY [None]
  - EXCITABILITY [None]
  - FOETAL DISTRESS SYNDROME [None]
  - FOETAL HEART RATE ABNORMAL [None]
  - INSOMNIA [None]
  - SPINAL ANAESTHESIA [None]
